FAERS Safety Report 8244824-1 (Version None)
Quarter: 2012Q1

REPORT INFORMATION
  Report Type: 
  Country: None (occurrence: None)
  Receive Date: 20120329
  Receipt Date: 20110523
  Transmission Date: 20120608
  Serious: Yes (Hospitalization)
  Sender: FDA-Public Use
  Company Number: US-MYLANLABS-2011S1010700

PATIENT
  Age: 81 Year
  Sex: Female
  Weight: 81.65 kg

DRUGS (1)
  1. FENTANYL-100 [Suspect]
     Indication: BACK PAIN
     Dosage: Q72H
     Route: 062
     Dates: start: 20110510, end: 20110501

REACTIONS (4)
  - CONFUSIONAL STATE [None]
  - SOMNOLENCE [None]
  - DYSPNOEA [None]
  - FATIGUE [None]
